FAERS Safety Report 4937400-7 (Version None)
Quarter: 2006Q1

REPORT INFORMATION
  Report Type: 
  Country: None (occurrence: None)
  Receive Date: 20060306
  Receipt Date: 20060221
  Transmission Date: 20060701
  Serious: Yes (Other)
  Sender: FDA-Public Use
  Company Number: 2006025645

PATIENT
  Age: 74 Year
  Sex: Male
  Weight: 71.2147 kg

DRUGS (16)
  1. LYRICA [Suspect]
     Indication: HERPES ZOSTER
     Dosage: 400 MG 1 D
     Dates: start: 20051109, end: 20060208
  2. INSULIN (INSULIN) [Concomitant]
  3. PANCREASE (PANCRELIPASE) [Concomitant]
  4. QUINAPRIL [Concomitant]
  5. AVAPRO [Concomitant]
  6. SYNTHROID [Concomitant]
  7. ALBUTEROL [Concomitant]
  8. NASONEX [Concomitant]
  9. FML (FLUOROMETHOLONE [Concomitant]
  10. AZMACORT [Concomitant]
  11. SINGULAIR ^MSD^ (MONTELEUKAST SODIUM) [Concomitant]
  12. CARAFATE [Concomitant]
  13. ACETYLSALICYLIC ACID SRT [Concomitant]
  14. AMOXICILLIN [Concomitant]
  15. VITAMIN B12 [Concomitant]
  16. ALPHAGAN [Concomitant]

REACTIONS (17)
  - ABDOMINAL DISTENSION [None]
  - ANOREXIA [None]
  - ASTHENIA [None]
  - ASTHMA [None]
  - CONDITION AGGRAVATED [None]
  - DIABETES MELLITUS INADEQUATE CONTROL [None]
  - DIZZINESS [None]
  - DYSPEPSIA [None]
  - FLATULENCE [None]
  - HEART RATE INCREASED [None]
  - HICCUPS [None]
  - MENTAL IMPAIRMENT [None]
  - NAUSEA [None]
  - RASH [None]
  - SOMNOLENCE [None]
  - TRANSIENT ACANTHOLYTIC DERMATOSIS [None]
  - WEIGHT DECREASED [None]
